FAERS Safety Report 5805150-0 (Version None)
Quarter: 2008Q3

REPORT INFORMATION
  Report Type: 
  Country: None (occurrence: None)
  Receive Date: 20080707
  Receipt Date: 20080620
  Transmission Date: 20090109
  Serious: Yes (Other)
  Sender: FDA-Public Use
  Company Number: 2008US001630

PATIENT
  Age: 60 Year
  Sex: Female

DRUGS (1)
  1. PROGRAF [Suspect]
     Indication: STEM CELL TRANSPLANT
     Dosage: ORAL
     Route: 048
     Dates: start: 20011201

REACTIONS (3)
  - GRAFT VERSUS HOST DISEASE [None]
  - LUNG DISORDER [None]
  - ORGANISING PNEUMONIA [None]
